FAERS Safety Report 4638303-8 (Version None)
Quarter: 2005Q2

REPORT INFORMATION
  Report Type: 
  Country: None (occurrence: None)
  Receive Date: 20050415
  Receipt Date: 20050329
  Transmission Date: 20051028
  Serious: Yes (Hospitalization)
  Sender: FDA-Public Use
  Company Number: 2005051641

PATIENT
  Age: 63 Year
  Sex: Male

DRUGS (4)
  1. AZITHROMYCIN [Suspect]
     Indication: UPPER RESPIRATORY TRACT INFLAMMATION
     Dosage: 500 MG, ORAL
     Route: 048
     Dates: start: 20050320
  2. SERRAPEPTASE (SERRAPEPTASE) [Suspect]
     Indication: UPPER RESPIRATORY TRACT INFLAMMATION
     Dosage: 1 TABLET TID, ORAL
     Route: 048
     Dates: start: 20050320, end: 20050322
  3. REBAMIPIDE (REBAMIPIDE) [Suspect]
     Indication: GASTRITIS
     Dosage: 1 TABLET, TID, ORAL
     Route: 048
     Dates: start: 20050320, end: 20050322
  4. ETHANOL (ETHANOL) [Suspect]
     Indication: ILL-DEFINED DISORDER

REACTIONS (1)
  - MENTAL IMPAIRMENT [None]
